FAERS Safety Report 5386133-4 (Version None)
Quarter: 2007Q3

REPORT INFORMATION
  Report Type: 
  Country: None (occurrence: None)
  Receive Date: 20070713
  Receipt Date: 20070704
  Transmission Date: 20080115
  Serious: Yes (Other)
  Sender: FDA-Public Use
  Company Number: GB-JNJFOC-20041202943

PATIENT
  Sex: Female
  Weight: 65 kg

DRUGS (7)
  1. REMICADE [Suspect]
     Indication: RHEUMATOID ARTHRITIS
     Route: 042
  2. ENBREL [Suspect]
     Indication: RHEUMATOID ARTHRITIS
     Route: 058
  3. METHOTREXATE [Concomitant]
     Indication: RHEUMATOID ARTHRITIS
     Route: 048
  4. DICLOFENAC [Concomitant]
  5. ACETAMINOPHEN W/ CODEINE [Concomitant]
  6. TRAMADOL HCL [Concomitant]
  7. FOLIC ACID [Concomitant]

REACTIONS (1)
  - NON-HODGKIN'S LYMPHOMA [None]
